FAERS Safety Report 7536193-7 (Version None)
Quarter: 2011Q2

REPORT INFORMATION
  Report Type: 
  Country: None (occurrence: None)
  Receive Date: 20110609
  Receipt Date: 20110608
  Transmission Date: 20111010
  Serious: Yes (Other)
  Sender: FDA-Public Use
  Company Number: MX-ABBOTT-09P-107-0569324-00

PATIENT
  Sex: Male
  Weight: 76 kg

DRUGS (4)
  1. HUMIRA [Suspect]
     Indication: ANKYLOSING SPONDYLITIS
     Route: 058
     Dates: start: 20050721, end: 20060729
  2. HUMIRA [Suspect]
     Route: 058
     Dates: start: 20060729, end: 20070929
  3. HUMIRA [Suspect]
     Route: 058
     Dates: start: 20080621, end: 20090119
  4. HUMIRA [Suspect]
     Route: 058
     Dates: start: 20070929, end: 20080621

REACTIONS (8)
  - MYALGIA [None]
  - PNEUMONITIS [None]
  - LIVER FUNCTION TEST ABNORMAL [None]
  - EPISTAXIS [None]
  - HEADACHE [None]
  - HEPATOMEGALY [None]
  - MOUTH ULCERATION [None]
  - HEPATIC ENZYME INCREASED [None]
